FAERS Safety Report 5257926-9 (Version None)
Quarter: 2007Q1

REPORT INFORMATION
  Report Type: 
  Country: None (occurrence: None)
  Receive Date: 20070307
  Receipt Date: 20061024
  Transmission Date: 20070707
  Serious: No
  Sender: FDA-Public Use
  Company Number: US-GLAXOSMITHKLINE-A0624752A

PATIENT
  Age: 64 Year
  Sex: Female

DRUGS (5)
  1. REQUIP [Suspect]
     Indication: RESTLESS LEGS SYNDROME
     Dosage: .25MG VARIABLE DOSE
     Route: 048
  2. EFFEXOR [Concomitant]
  3. XANAX [Concomitant]
  4. BENICAR [Concomitant]
  5. UNKNOWN MEDICATION [Concomitant]

REACTIONS (2)
  - GASTROENTERITIS VIRAL [None]
  - NAUSEA [None]
